FAERS Safety Report 6621002-0 (Version None)
Quarter: 2010Q1

REPORT INFORMATION
  Report Type: 
  Country: None (occurrence: None)
  Receive Date: 20100309
  Receipt Date: 20100225
  Transmission Date: 20100710
  Serious: Yes (Hospitalization, Other)
  Sender: FDA-Public Use
  Company Number: PHHY2009JP34758

PATIENT
  Sex: Female

DRUGS (9)
  1. GLEEVEC [Suspect]
     Indication: CHRONIC MYELOID LEUKAEMIA
     Dosage: 300 MG/DAY
     Route: 048
     Dates: start: 20081104, end: 20081201
  2. GLEEVEC [Suspect]
     Dosage: 200 MG DAILY
     Route: 048
     Dates: start: 20081224
  3. SEVELAMER HYDROCHLORIDE [Suspect]
     Indication: PROPHYLAXIS
     Dosage: 1300 MG DAILY
     Route: 048
  4. CALCIUM CARBONATE [Suspect]
     Indication: PROPHYLAXIS
     Dosage: 3000 MG DAILY
     Route: 048
  5. RENAGEL [Suspect]
     Indication: PROPHYLAXIS
     Dosage: 1500 MG DAILY
     Route: 048
  6. MEDIPEACE [Suspect]
     Indication: PROPHYLAXIS
     Dosage: 0.5 MG DAILY
     Route: 048
  7. EURAX [Concomitant]
     Dosage: UNK
     Route: 061
  8. TAKEPRON [Concomitant]
     Indication: PROPHYLAXIS
     Dosage: 15 MG, UNK
     Route: 048
     Dates: start: 20081114
  9. ALESION [Concomitant]
     Dosage: 20 MG, UNK

REACTIONS (8)
  - ACUTE ABDOMEN [None]
  - BLOOD CREATINE PHOSPHOKINASE INCREASED [None]
  - BLOOD LACTATE DEHYDROGENASE INCREASED [None]
  - BLOOD POTASSIUM INCREASED [None]
  - COLITIS ISCHAEMIC [None]
  - HAEMATOCHEZIA [None]
  - MESENTERIC PANNICULITIS [None]
  - RASH [None]
